FAERS Safety Report 14605640 (Version 3)
Quarter: 2018Q3

REPORT INFORMATION
  Report Type: Spontaneous
  Country: US (occurrence: US)
  Receive Date: 20180306
  Receipt Date: 20180831
  Transmission Date: 20181010
  Serious: No
  Sender: FDA-Public Use
  Company Number: US-INTERCEPT-PMOCA2018000158

PATIENT

DRUGS (11)
  1. LORAZEPAM. [Concomitant]
     Active Substance: LORAZEPAM
  2. ATORVASTATIN [Concomitant]
     Active Substance: ATORVASTATIN
  3. LEXAPRO [Concomitant]
     Active Substance: ESCITALOPRAM OXALATE
  4. URSODIOL. [Concomitant]
     Active Substance: URSODIOL
  5. RALOXIFENE. [Concomitant]
     Active Substance: RALOXIFENE
  6. BIOTIN [Concomitant]
     Active Substance: BIOTIN
  7. OCALIVA [Suspect]
     Active Substance: OBETICHOLIC ACID
     Indication: PRIMARY BILIARY CHOLANGITIS
     Dosage: 5 MG, QD
     Route: 048
     Dates: start: 20170822
  8. OCALIVA [Suspect]
     Active Substance: OBETICHOLIC ACID
     Dosage: 10 MG, QD
     Route: 048
  9. LISINOPRIL. [Concomitant]
     Active Substance: LISINOPRIL
  10. ESOMEPRAZOLE [Concomitant]
     Active Substance: ESOMEPRAZOLE
  11. NEXIUM [Concomitant]
     Active Substance: ESOMEPRAZOLE MAGNESIUM

REACTIONS (6)
  - Abdominal discomfort [Unknown]
  - Flatulence [Unknown]
  - Nervousness [Unknown]
  - Hunger [Unknown]
  - Constipation [Unknown]
  - Gastrointestinal sounds abnormal [Not Recovered/Not Resolved]
